FAERS Safety Report 16211632 (Version 1)
Quarter: 2019Q2

REPORT INFORMATION
  Report Type: Spontaneous
  Country: US (occurrence: US)
  Receive Date: 20190418
  Receipt Date: 20190418
  Transmission Date: 20190711
  Serious: No
  Sender: FDA-Public Use
  Company Number: US-GLENMARK PHARMACEUTICALS-2019GMK040139

PATIENT

DRUGS (2)
  1. IMIQUIMOD CREAM USP, 5% [Suspect]
     Active Substance: IMIQUIMOD
     Indication: WOUND
  2. IMIQUIMOD CREAM USP, 5% [Suspect]
     Active Substance: IMIQUIMOD
     Indication: BASAL CELL CARCINOMA
     Dosage: UNK
     Route: 061
     Dates: start: 20190213, end: 20190302

REACTIONS (5)
  - Product use in unapproved indication [Unknown]
  - Wound [Not Recovered/Not Resolved]
  - Inflammation of wound [Unknown]
  - Condition aggravated [Not Recovered/Not Resolved]
  - Adverse reaction [Not Recovered/Not Resolved]
